FAERS Safety Report 7681787-1 (Version None)
Quarter: 2011Q3

REPORT INFORMATION
  Report Type: 
  Country: None (occurrence: None)
  Receive Date: 20110812
  Receipt Date: 20110804
  Transmission Date: 20111222
  Serious: Yes (Hospitalization, Other)
  Sender: FDA-Public Use
  Company Number: US-ASTRAZENECA-2011SE46590

PATIENT
  Age: 50 Year
  Sex: Female
  Weight: 110 kg

DRUGS (3)
  1. CLONIDINE [Suspect]
     Route: 065
     Dates: start: 20110606
  2. LISINOPRIL [Suspect]
     Route: 048
  3. THYROXIN [Concomitant]

REACTIONS (3)
  - LIP SWELLING [None]
  - PANIC ATTACK [None]
  - URTICARIA [None]
